FAERS Safety Report 4596622-8 (Version None)
Quarter: 2005Q1

REPORT INFORMATION
  Report Type: 
  Country: None (occurrence: None)
  Receive Date: 20050228
  Receipt Date: 20050222
  Transmission Date: 20050727
  Serious: Yes (Hospitalization)
  Sender: FDA-Public Use
  Company Number: 2005031768

PATIENT
  Age: 44 Year
  Sex: Female

DRUGS (7)
  1. DILANTIN KAPSEAL [Suspect]
     Indication: ILL-DEFINED DISORDER
     Dosage: 400 MG (100 MG, 2 IN 1 D), ORAL
     Route: 048
  2. LAMOTRIGINE [Concomitant]
  3. GUAIFENESIN (GUAIFENESIN) [Concomitant]
  4. LORAZEPAM [Concomitant]
  5. LORATADINE [Concomitant]
  6. IBUPROFEN [Concomitant]
  7. RISPERDAL [Concomitant]

REACTIONS (2)
  - DRUG LEVEL INCREASED [None]
  - UNEVALUABLE EVENT [None]
